FAERS Safety Report 7652985 (Version 6)
Quarter: 2016Q2

REPORT INFORMATION
  Report Type: Spontaneous
  Country: US (occurrence: US)
  Receive Date: 20101102
  Receipt Date: 20160408
  Transmission Date: 20160815
  Serious: Yes (Hospitalization, Other)
  Sender: FDA-Public Use
  Company Number: US-JNJFOC-20101005943

PATIENT
  Age: 45 Year
  Sex: Female
  Weight: 79.2 kg

DRUGS (24)
  1. LEVLEN [Suspect]
     Active Substance: ETHINYL ESTRADIOL\LEVONORGESTREL
     Indication: PRODUCT USED FOR UNKNOWN INDICATION
     Route: 048
     Dates: start: 20050307, end: 20060202
  2. ORTHO-NOVUM 1/50 [Suspect]
     Active Substance: MESTRANOL\NORETHINDRONE
     Indication: CONTRACEPTION
     Route: 048
     Dates: start: 1974, end: 1985
  3. LEVLEN [Suspect]
     Active Substance: ETHINYL ESTRADIOL\LEVONORGESTREL
     Indication: PRODUCT USED FOR UNKNOWN INDICATION
     Route: 048
     Dates: start: 20050307, end: 20060207
  4. FLUNISOLIDE. [Concomitant]
     Active Substance: FLUNISOLIDE
     Route: 045
     Dates: start: 20060223, end: 20070223
  5. FLUNISOLIDE. [Concomitant]
     Active Substance: FLUNISOLIDE
     Route: 045
     Dates: start: 20061120, end: 20071120
  6. MICROGESTIN FE [Suspect]
     Active Substance: ETHINYL ESTRADIOL\FERROUS FUMARATE\NORETHINDRONE ACETATE
     Indication: PRODUCT USED FOR UNKNOWN INDICATION
     Route: 048
     Dates: start: 20050322, end: 20060202
  7. MICROGESTIN FE [Suspect]
     Active Substance: ETHINYL ESTRADIOL\FERROUS FUMARATE\NORETHINDRONE ACETATE
     Indication: PRODUCT USED FOR UNKNOWN INDICATION
     Route: 048
     Dates: start: 20060327, end: 20070327
  8. FLUNISOLIDE. [Concomitant]
     Active Substance: FLUNISOLIDE
     Route: 045
     Dates: start: 20060223, end: 20070223
  9. RETIN-A MICRO 0.04% [Concomitant]
     Route: 061
     Dates: start: 20050323, end: 20051213
  10. CLARITIN [Concomitant]
     Active Substance: LORATADINE
     Indication: HYPERSENSITIVITY
     Route: 048
     Dates: start: 1998
  11. FLUOCINONIDE 0.05% [Concomitant]
     Active Substance: FLUOCINONIDE
     Route: 065
     Dates: start: 20051213, end: 20061105
  12. FLUOCINONIDE 0.05% [Concomitant]
     Active Substance: FLUOCINONIDE
     Route: 065
     Dates: start: 20050323, end: 20051213
  13. RETIN-A MICRO 0.04% [Concomitant]
     Route: 061
     Dates: start: 20051213, end: 20061222
  14. FLUOCINONIDE 0.05% [Concomitant]
     Active Substance: FLUOCINONIDE
     Route: 065
     Dates: start: 20061219, end: 20071219
  15. FLUNISOLIDE. [Concomitant]
     Active Substance: FLUNISOLIDE
     Route: 045
     Dates: start: 20060223, end: 20060331
  16. MICROGESTIN FE [Suspect]
     Active Substance: ETHINYL ESTRADIOL\FERROUS FUMARATE\NORETHINDRONE ACETATE
     Indication: PRODUCT USED FOR UNKNOWN INDICATION
     Route: 048
     Dates: start: 20050322, end: 20060223
  17. MICROGESTIN FE [Suspect]
     Active Substance: ETHINYL ESTRADIOL\FERROUS FUMARATE\NORETHINDRONE ACETATE
     Indication: PRODUCT USED FOR UNKNOWN INDICATION
     Route: 048
     Dates: start: 20050322, end: 20060329
  18. MICROGESTIN FE [Suspect]
     Active Substance: ETHINYL ESTRADIOL\FERROUS FUMARATE\NORETHINDRONE ACETATE
     Indication: PRODUCT USED FOR UNKNOWN INDICATION
     Route: 048
     Dates: start: 20050322, end: 20060227
  19. RETIN-A MICRO 0.04% [Concomitant]
     Route: 061
     Dates: start: 20061219, end: 20071219
  20. FLUNISOLIDE. [Concomitant]
     Active Substance: FLUNISOLIDE
     Route: 045
     Dates: start: 20061003, end: 20061003
  21. FLUNISOLIDE. [Concomitant]
     Active Substance: FLUNISOLIDE
     Route: 045
     Dates: start: 20061219, end: 20071219
  22. FLUNISOLIDE. [Concomitant]
     Active Substance: FLUNISOLIDE
     Route: 045
     Dates: start: 20050823, end: 20060202
  23. FLUNISOLIDE. [Concomitant]
     Active Substance: FLUNISOLIDE
     Route: 045
     Dates: start: 20060223, end: 20060331
  24. FLUNISOLIDE. [Concomitant]
     Active Substance: FLUNISOLIDE
     Route: 045
     Dates: start: 20060622, end: 20070622

REACTIONS (6)
  - Intraductal proliferative breast lesion [Recovered/Resolved]
  - Ultrasound scan abnormal [Recovered/Resolved]
  - Breast cyst [Unknown]
  - Computerised tomogram abnormal [Recovered/Resolved]
  - Breast calcifications [Unknown]
  - Menstruation irregular [Unknown]

NARRATIVE: CASE EVENT DATE: 200601
